FAERS Safety Report 9798530 (Version 1)
Quarter: 2014Q1

REPORT INFORMATION
  Report Type: Spontaneous
  Country: US (occurrence: None)
  Receive Date: 20140102
  Receipt Date: 20140102
  Transmission Date: 20141002
  Serious: Yes (Hospitalization)
  Sender: FDA-Public Use
  Company Number: None

PATIENT
  Age: 68 Year
  Sex: Female

DRUGS (5)
  1. CHLORHEXIDINE GLUCONATE [Suspect]
     Indication: STAPHYLOCOCCAL INFECTION
     Route: 061
     Dates: start: 20130927, end: 20131016
  2. CHLORHEXIDINE GLUCONATE [Suspect]
     Indication: PROPHYLAXIS
     Route: 061
     Dates: start: 20130927, end: 20131016
  3. DONEPEZIL [Concomitant]
  4. AMLODIPINE [Concomitant]
  5. LEOTHYROXINE [Concomitant]

REACTIONS (2)
  - Rash [None]
  - Erythema [None]
